FAERS Safety Report 12815704 (Version 2)
Quarter: 2016Q4

REPORT INFORMATION
  Report Type: Spontaneous
  Country: IT (occurrence: IT)
  Receive Date: 20161005
  Receipt Date: 20161018
  Transmission Date: 20170207
  Serious: Yes (Hospitalization, Other)
  Sender: FDA-Public Use
  Company Number: IT-MYLANLABS-2016M1042703

PATIENT

DRUGS (3)
  1. GABAPENTIN. [Suspect]
     Active Substance: GABAPENTIN
     Indication: PRODUCT USED FOR UNKNOWN INDICATION
     Dosage: 600 MG, TID
  2. MUTABON [Suspect]
     Active Substance: AMITRIPTYLINE HYDROCHLORIDE\PERPHENAZINE
     Indication: ANXIETY
     Dosage: 1 DF, QD
     Route: 048
     Dates: start: 2011, end: 20131231
  3. BRINTELLIX [Suspect]
     Active Substance: VORTIOXETINE HYDROBROMIDE
     Indication: PRODUCT USED FOR UNKNOWN INDICATION
     Dosage: 10 MG, QD

REACTIONS (15)
  - Gait disturbance [Unknown]
  - Toxicity to various agents [Recovered/Resolved with Sequelae]
  - Loss of consciousness [Unknown]
  - Asthenia [Unknown]
  - Muscle rigidity [Unknown]
  - Syncope [Unknown]
  - Headache [Unknown]
  - Paraesthesia [Unknown]
  - Musculoskeletal stiffness [Unknown]
  - Derealisation [Unknown]
  - Dysgeusia [Unknown]
  - Suicidal ideation [Not Recovered/Not Resolved]
  - Parosmia [Unknown]
  - Vomiting [Unknown]
  - Vertigo [Unknown]

NARRATIVE: CASE EVENT DATE: 2011
